FAERS Safety Report 6235361-4 (Version None)
Quarter: 2009Q2

REPORT INFORMATION
  Report Type: 
  Country: None (occurrence: None)
  Receive Date: 20090615
  Receipt Date: 20090602
  Transmission Date: 20091009
  Serious: No
  Sender: FDA-Public Use
  Company Number: 006421

PATIENT
  Age: 76 Year
  Sex: Female
  Weight: 81 kg

DRUGS (10)
  1. PLETAL [Suspect]
     Indication: PERIPHERAL ARTERIAL OCCLUSIVE DISEASE
     Dosage: 100 MG, ORAL; 100 MG, ORAL; 100 MG, QD
     Route: 048
     Dates: start: 20090311, end: 20090509
  2. PLETAL [Suspect]
     Indication: PERIPHERAL ARTERIAL OCCLUSIVE DISEASE
     Dosage: 100 MG, ORAL; 100 MG, ORAL; 100 MG, QD
     Route: 048
     Dates: start: 20090311, end: 20090509
  3. PLETAL [Suspect]
     Indication: PERIPHERAL ARTERIAL OCCLUSIVE DISEASE
     Dosage: 100 MG, ORAL; 100 MG, ORAL; 100 MG, QD
     Route: 048
     Dates: end: 20090509
  4. BISOPROLOL FUMARATE [Concomitant]
  5. AMLOPIN (AMLODIPINE BESILATE) [Concomitant]
  6. VALSARTAN [Concomitant]
  7. FUROSEMIDE [Concomitant]
  8. PANTOZOL GFR (PANTOPRAZOLE SODIUM) [Concomitant]
  9. SIMVASTATIN (SIMVASTATIN) [Concomitant]
  10. OXYBUTYNIN CHLORIDE [Concomitant]

REACTIONS (2)
  - HOT FLUSH [None]
  - INTESTINAL HAEMORRHAGE [None]
